FAERS Safety Report 21088346 (Version 1)
Quarter: 2022Q3

REPORT INFORMATION
  Report Type: Spontaneous
  Country: US (occurrence: None)
  Receive Date: 20220715
  Receipt Date: 20220715
  Transmission Date: 20221027
  Serious: Yes (Hospitalization)
  Sender: FDA-Public Use
  Company Number: None

PATIENT
  Sex: Male

DRUGS (1)
  1. DEFERASIROX [Suspect]
     Active Substance: DEFERASIROX
     Indication: Haemochromatosis
     Dosage: TAKE FOUR 360 MG TABLETS ALONG WITH ONE 90 MG TABLET BY MOUTH DAILY?
     Route: 048
     Dates: start: 20200107

REACTIONS (2)
  - Pain [None]
  - Therapy interrupted [None]
